FAERS Safety Report 5164117-9 (Version None)
Quarter: 2006Q4

REPORT INFORMATION
  Report Type: 
  Country: None (occurrence: None)
  Receive Date: 20061124
  Receipt Date: 20061109
  Transmission Date: 20070319
  Serious: Yes (Death)
  Sender: FDA-Public Use
  Company Number: 2006138934

PATIENT
  Age: 52 Year
  Sex: 0

DRUGS (3)
  1. GABAPENTIN [Suspect]
     Dosage: ORAL
     Route: 048
  2. FENTANYL [Suspect]
     Dosage: TRANSDERMAL
     Route: 062
  3. FLUOXETINE [Suspect]
     Dosage: ORAL
     Route: 048

REACTIONS (1)
  - INCORRECT ROUTE OF DRUG ADMINISTRATION [None]
